FAERS Safety Report 6845554-0 (Version None)
Quarter: 2010Q3

REPORT INFORMATION
  Report Type: 
  Country: None (occurrence: None)
  Receive Date: 20100715
  Receipt Date: 20080814
  Transmission Date: 20110219
  Serious: No
  Sender: FDA-Public Use
  Company Number: US-PFIZER INC-2007068881

PATIENT
  Sex: Male
  Weight: 84.1 kg

DRUGS (1)
  1. CHANTIX [Suspect]
     Indication: SMOKING CESSATION THERAPY
     Dates: start: 20070704

REACTIONS (5)
  - ANXIETY [None]
  - EUPHORIC MOOD [None]
  - INAPPROPRIATE AFFECT [None]
  - MEDICATION ERROR [None]
  - PANIC ATTACK [None]
